FAERS Safety Report 17204089 (Version 2)
Quarter: 2020Q1

REPORT INFORMATION
  Report Type: Report from Study
  Country: MX (occurrence: MX)
  Receive Date: 20191226
  Receipt Date: 20200212
  Transmission Date: 20200409
  Serious: Yes (Other)
  Sender: FDA-Public Use
  Company Number: MX-BAYER-2019-180044

PATIENT
  Age: 70 Year
  Sex: Male

DRUGS (9)
  1. NEXAVAR [Suspect]
     Active Substance: SORAFENIB
     Indication: HEPATOCELLULAR CARCINOMA
     Dosage: 400 MG, BID
     Route: 048
     Dates: start: 20190912
  2. NEXAVAR [Suspect]
     Active Substance: SORAFENIB
     Indication: HEPATOCELLULAR CARCINOMA
     Dosage: 600 MG; 2 TABLETS IN THE MORNING AND 1 TABLET AT NIGHT
     Route: 048
     Dates: end: 20191104
  3. AMLODIPINE [Concomitant]
     Active Substance: AMLODIPINE BESYLATE
     Indication: HYPERTENSION
     Dosage: 0.5 DF, QD
     Route: 048
     Dates: start: 201911
  4. LEGALON [Concomitant]
     Active Substance: DIETARY SUPPLEMENT\HERBALS\MILK THISTLE
     Indication: LIVER DISORDER
     Dosage: 2 DF, QD
     Route: 048
  5. INDERALICI [Concomitant]
     Active Substance: PROPRANOLOL HYDROCHLORIDE
     Dosage: UNK
     Dates: start: 201909
  6. LOSARTAN. [Concomitant]
     Active Substance: LOSARTAN
     Indication: CARDIOVASCULAR EVENT PROPHYLAXIS
     Dosage: 0.5 DF, QD
     Route: 048
  7. NEXAVAR [Suspect]
     Active Substance: SORAFENIB
     Indication: HEPATOCELLULAR CARCINOMA
     Dosage: 200 MG, BID
     Route: 048
  8. FUROSEMIDE. [Concomitant]
     Active Substance: FUROSEMIDE
     Indication: ASCITES
     Dosage: 1 DF, BID
     Dates: start: 20191205
  9. LASILACTON [Concomitant]
     Active Substance: FUROSEMIDE\SPIRONOLACTONE
     Indication: OEDEMA
     Dosage: 1 DF, QD
     Route: 048
     Dates: start: 20191205

REACTIONS (15)
  - Ascites [Recovering/Resolving]
  - Acne [Not Recovered/Not Resolved]
  - Blood bilirubin increased [Unknown]
  - Gait disturbance [Recovering/Resolving]
  - Mouth ulceration [Not Recovered/Not Resolved]
  - Hepatic enzyme increased [None]
  - Blister [Recovering/Resolving]
  - Oedema peripheral [Recovering/Resolving]
  - Platelet count decreased [Recovering/Resolving]
  - Hepatic enzyme increased [Recovering/Resolving]
  - Pain in extremity [Not Recovered/Not Resolved]
  - Pain in extremity [Not Recovered/Not Resolved]
  - Bradycardia [Recovering/Resolving]
  - Rash [Not Recovered/Not Resolved]
  - Off label use [None]

NARRATIVE: CASE EVENT DATE: 20190919
